FAERS Safety Report 4368362-1 (Version None)
Quarter: 2004Q2

REPORT INFORMATION
  Report Type: 
  Country: None (occurrence: None)
  Receive Date: 20040525
  Receipt Date: 20040511
  Transmission Date: 20050107
  Serious: Yes (Other)
  Sender: FDA-Public Use
  Company Number: 2004-DE-02930BY

PATIENT

DRUGS (1)
  1. KINZAL (TELMISARTAN)  (TELMISARTAN) [Suspect]

REACTIONS (1)
  - CARDIAC DISORDER [None]
